FAERS Safety Report 13935578 (Version 1)
Quarter: 2017Q3

REPORT INFORMATION
  Report Type: Spontaneous
  Country: HR (occurrence: HR)
  Receive Date: 20170905
  Receipt Date: 20170905
  Transmission Date: 20171127
  Serious: Yes (Other)
  Sender: FDA-Public Use
  Company Number: HR-TEVA-800580ACC

PATIENT
  Age: 72 Year
  Sex: Female

DRUGS (1)
  1. LOQUEN [Suspect]
     Active Substance: QUETIAPINE FUMARATE
     Dosage: 10 DOSAGE FORMS DAILY;
     Route: 048
     Dates: start: 20170728, end: 20170728

REACTIONS (4)
  - Somnolence [Unknown]
  - Suicide attempt [Unknown]
  - Hypotension [Unknown]
  - Miosis [Unknown]

NARRATIVE: CASE EVENT DATE: 20170728
